FAERS Safety Report 5119507-7 (Version None)
Quarter: 2006Q4

REPORT INFORMATION
  Report Type: 
  Country: None (occurrence: None)
  Receive Date: 20061003
  Receipt Date: 20031218
  Transmission Date: 20070319
  Serious: Yes (Hospitalization)
  Sender: FDA-Public Use
  Company Number: IL-ROCHE-354474

PATIENT
  Age: 75 Year
  Sex: Male
  Weight: 77 kg

DRUGS (5)
  1. CAPECITABINE [Suspect]
     Dosage: GIVEN IN THREE WEEK CYCLES CONSISTING OF 2 WEEKS OF TREATMENT FOLLOWED BY 1 WEEK WITHOUT TREATMENT.
     Route: 048
     Dates: start: 20030824, end: 20031130
  2. OXALIPLATIN [Suspect]
     Route: 042
     Dates: start: 20030824, end: 20031116
  3. VASCASE [Concomitant]
     Dates: start: 19980615
  4. NORMITEN [Concomitant]
     Dates: start: 19980615
  5. ASPIRIN [Concomitant]
     Dates: start: 19980615

REACTIONS (4)
  - CEREBRAL INFARCTION [None]
  - DYSPNOEA [None]
  - NERVOUS SYSTEM DISORDER [None]
  - SPINAL CORD INFARCTION [None]
